FAERS Safety Report 7621229-5 (Version None)
Quarter: 2011Q3

REPORT INFORMATION
  Report Type: 
  Country: None (occurrence: None)
  Receive Date: 20110719
  Receipt Date: 20110623
  Transmission Date: 20111222
  Serious: No
  Sender: FDA-Public Use
  Company Number: US-B.I. PHARMACEUTICALS,INC./RIDGEFIELD-2011-BP-14455BP

PATIENT

DRUGS (9)
  1. OMEPRAZOLE [Concomitant]
     Dosage: 20 MG
     Route: 048
  2. ASPIRIN [Concomitant]
     Dosage: 81 MG
     Route: 048
  3. SPIRIVA [Suspect]
  4. BENAZEPRIL HYDROCHLORIDE [Concomitant]
     Dosage: 20 MG
     Route: 048
  5. FLUTICASONE PROPIONATE [Concomitant]
     Route: 055
  6. TRAMADOL HCL [Concomitant]
     Route: 048
  7. ALBUTEROL SULFATE AUTOHALER [Concomitant]
     Route: 055
  8. AZITHROMYCIN [Concomitant]
     Dosage: 500 MG
     Route: 048
  9. DIPHENOXYLATE [Concomitant]
     Dosage: 5 MG
     Route: 048

REACTIONS (3)
  - DYSPNOEA [None]
  - LOWER RESPIRATORY TRACT INFECTION [None]
  - WHEEZING [None]
